FAERS Safety Report 21563206 (Version 5)
Quarter: 2023Q2

REPORT INFORMATION
  Report Type: Spontaneous
  Country: US (occurrence: US)
  Receive Date: 20221107
  Receipt Date: 20230414
  Transmission Date: 20230721
  Serious: Yes (Other)
  Sender: FDA-Public Use
  Company Number: US-SA-SAC20221103001308

PATIENT
  Sex: Male

DRUGS (2)
  1. KEVZARA [Suspect]
     Active Substance: SARILUMAB
     Indication: Rheumatoid arthritis
     Dosage: 200 MG, QOW
     Route: 058
  2. METFORMIN HYDROCHLORIDE [Suspect]
     Active Substance: METFORMIN HYDROCHLORIDE
     Indication: Diabetes mellitus
     Dosage: UNK

REACTIONS (18)
  - Chronic kidney disease [Unknown]
  - Neuropathy peripheral [Unknown]
  - Renal failure [Unknown]
  - Osteoarthritis [Unknown]
  - Migraine [Unknown]
  - Peripheral swelling [Unknown]
  - Hypoaesthesia [Unknown]
  - Movement disorder [Unknown]
  - Thermal burn [Unknown]
  - Fall [Unknown]
  - Impaired healing [Unknown]
  - Pain [Unknown]
  - Malaise [Unknown]
  - Injection site pain [Unknown]
  - Shoulder fracture [Unknown]
  - Rotator cuff syndrome [Unknown]
  - Localised infection [Unknown]
  - Inappropriate schedule of product administration [Unknown]

NARRATIVE: CASE EVENT DATE: 20200101
